FAERS Safety Report 22214641 (Version 1)
Quarter: 2023Q2

REPORT INFORMATION
  Report Type: Report from Study
  Country: US (occurrence: US)
  Receive Date: 20230415
  Receipt Date: 20230415
  Transmission Date: 20230722
  Serious: Yes (Other)
  Sender: FDA-Public Use
  Company Number: US-ABBVIE-4727647

PATIENT
  Sex: Male

DRUGS (1)
  1. HUMIRA [Suspect]
     Active Substance: ADALIMUMAB
     Indication: Ankylosing spondylitis
     Route: 058
     Dates: start: 20221128

REACTIONS (6)
  - Amnesia [Not Recovered/Not Resolved]
  - Diarrhoea [Unknown]
  - Road traffic accident [Recovering/Resolving]
  - Abdominal discomfort [Recovering/Resolving]
  - Malignant melanoma [Not Recovered/Not Resolved]
  - Colon injury [Unknown]
